FAERS Safety Report 8195369-9 (Version None)
Quarter: 2012Q1

REPORT INFORMATION
  Report Type: 
  Country: None (occurrence: None)
  Receive Date: 20120308
  Receipt Date: 20120302
  Transmission Date: 20120608
  Serious: Yes (Hospitalization)
  Sender: FDA-Public Use
  Company Number: US-GLAXOSMITHKLINE-A0969014A

PATIENT
  Age: 85 Year
  Sex: Female

DRUGS (16)
  1. COUMADIN [Concomitant]
     Dosage: 10MGD PER DAY
  2. CALCIUM + D [Concomitant]
     Dosage: 2TAB PER DAY
  3. TYLENOL [Concomitant]
     Dosage: 500MG AS REQUIRED
  4. LOVAZA [Concomitant]
     Dosage: 3CAP PER DAY
  5. FLOLAN [Suspect]
     Indication: PULMONARY ARTERIAL HYPERTENSION
     Dosage: 16NGKM UNKNOWN
     Route: 042
     Dates: start: 19980609
  6. POTASSIUM [Concomitant]
     Dosage: 20MEQ PER DAY
  7. PREDNISONE TAB [Concomitant]
     Dosage: 10MG AS DIRECTED
  8. PRILOSEC [Concomitant]
     Dosage: 20MG PER DAY
     Route: 048
  9. SYNTHROID [Concomitant]
     Dosage: 100MCG PER DAY
  10. IMODIUM [Concomitant]
  11. GLUCOSAMINE [Concomitant]
     Dosage: 1000MGD PER DAY
  12. OXYGEN [Concomitant]
     Dosage: 2.5L CONTINUOUS
     Route: 045
  13. SOTALOL HCL [Concomitant]
     Dosage: 80MG TWICE PER DAY
  14. FUROSEMIDE [Concomitant]
     Dosage: 40MGD PER DAY
  15. SPIRONOLACTONE [Concomitant]
     Dosage: 50MGD PER DAY
  16. MULTI-VITAMIN [Concomitant]
     Dosage: 1TAB PER DAY
     Route: 048

REACTIONS (1)
  - AZOTAEMIA [None]
